FAERS Safety Report 6942717-0 (Version None)
Quarter: 2010Q3

REPORT INFORMATION
  Report Type: 
  Country: None (occurrence: None)
  Receive Date: 20100826
  Receipt Date: 20100817
  Transmission Date: 20110219
  Serious: Yes (Death, Hospitalization)
  Sender: FDA-Public Use
  Company Number: FR-PERRIGO-10FR012274

PATIENT
  Age: 81 Year
  Sex: Male

DRUGS (3)
  1. CLOBETASOL PROPIONATE RX 0.05% 9F0 [Suspect]
     Indication: PEMPHIGOID
     Dosage: VARIABLE DOSE
     Route: 061
     Dates: start: 20080701
  2. INSULIN [Concomitant]
     Indication: DIABETES MELLITUS
     Dosage: UNK
     Route: 058
  3. CELICEPT [Concomitant]
     Indication: PEMPHIGOID
     Dosage: UNK
     Route: 065

REACTIONS (3)
  - ERYSIPELAS [None]
  - LUNG INFECTION [None]
  - NECROTISING FASCIITIS [None]
